FAERS Safety Report 9515012 (Version 1)
Quarter: 2013Q3

REPORT INFORMATION
  Report Type: Spontaneous
  Country: HR (occurrence: HR)
  Receive Date: 20130911
  Receipt Date: 20130911
  Transmission Date: 20140515
  Serious: Yes (Death)
  Sender: FDA-Public Use
  Company Number: HR-ACTELION-A-CH2013-88247

PATIENT
  Sex: Male

DRUGS (1)
  1. TRACLEER [Suspect]
     Indication: SYSTEMIC SCLEROSIS
     Route: 048

REACTIONS (1)
  - Respiratory arrest [Fatal]
